FAERS Safety Report 18835283 (Version 1)
Quarter: 2021Q1

REPORT INFORMATION
  Report Type: Spontaneous
  Country: US (occurrence: US)
  Receive Date: 20210203
  Receipt Date: 20210203
  Transmission Date: 20210419
  Serious: No
  Sender: FDA-Public Use
  Company Number: US-ALLERGAN-2018974US

PATIENT
  Age: 40 Year
  Sex: Female
  Weight: 71.49 kg

DRUGS (1)
  1. BOTOX [Suspect]
     Active Substance: ONABOTULINUMTOXINA
     Indication: MIGRAINE
     Dosage: 155 UNITS, SINGLE
     Route: 065
     Dates: start: 20200318, end: 20200318

REACTIONS (2)
  - Therapeutic product effect incomplete [Unknown]
  - Rash [Unknown]
